FAERS Safety Report 15869154 (Version 1)
Quarter: 2019Q1

REPORT INFORMATION
  Report Type: Spontaneous
  Country: JP (occurrence: JP)
  Receive Date: 20190125
  Receipt Date: 20190125
  Transmission Date: 20190417
  Serious: Yes (Disabling, Other)
  Sender: FDA-Public Use
  Company Number: JP-OTSUKA-JP-2014-13411

PATIENT
  Age: 59 Year
  Sex: Female

DRUGS (7)
  1. ABILIFY [Suspect]
     Active Substance: ARIPIPRAZOLE
     Indication: DEMENTIA WITH LEWY BODIES
     Dosage: 3 MG, QD
     Route: 048
     Dates: start: 20140416, end: 20140421
  2. ABILIFY [Suspect]
     Active Substance: ARIPIPRAZOLE
     Dosage: 6 MG, QD
     Route: 048
     Dates: start: 20140414, end: 20140415
  3. HYDROCORTONE FOSFAT [Concomitant]
     Indication: INAPPROPRIATE ANTIDIURETIC HORMONE SECRETION
     Dosage: UNK
     Route: 042
  4. THYRADIN S [Concomitant]
     Active Substance: LEVOTHYROXINE SODIUM
     Indication: POSTPARTUM HYPOPITUITARISM
     Dosage: 0.062 MG, QD
     Route: 048
  5. ABILIFY [Suspect]
     Active Substance: ARIPIPRAZOLE
     Indication: OFF LABEL USE
     Dosage: 3 MG, QD
     Route: 048
     Dates: start: 20140408, end: 20140413
  6. RISPERIDONE. [Concomitant]
     Active Substance: RISPERIDONE
     Dosage: 2 MG, QD
     Route: 048
     Dates: start: 201402
  7. RISPERIDONE. [Concomitant]
     Active Substance: RISPERIDONE
     Indication: DEMENTIA WITH LEWY BODIES
     Dosage: 1 MG, QD
     Route: 048
     Dates: end: 20140407

REACTIONS (9)
  - Altered state of consciousness [Recovered/Resolved]
  - Vomiting [Unknown]
  - Hypoxia [Unknown]
  - Inappropriate antidiuretic hormone secretion [Recovering/Resolving]
  - Adrenocortical insufficiency acute [Recovering/Resolving]
  - Blood sodium decreased [Recovering/Resolving]
  - Off label use [Unknown]
  - Pneumonia aspiration [Unknown]
  - Nausea [Unknown]

NARRATIVE: CASE EVENT DATE: 20140409
